FAERS Safety Report 9204778 (Version 1)
Quarter: 2013Q2

REPORT INFORMATION
  Report Type: Spontaneous
  Country: US (occurrence: US)
  Receive Date: 20130402
  Receipt Date: 20130402
  Transmission Date: 20140414
  Serious: Yes (Hospitalization)
  Sender: FDA-Public Use
  Company Number: US-GLAXOSMITHKLINE-A1018300A

PATIENT
  Age: 60 Year
  Sex: Female

DRUGS (4)
  1. WELLBUTRIN [Suspect]
     Indication: PRODUCT USED FOR UNKNOWN INDICATION
     Route: 065
     Dates: end: 2013
  2. CYMBALTA [Suspect]
     Indication: MAJOR DEPRESSION
     Dosage: 60MG TWICE PER DAY
     Route: 065
     Dates: start: 2011, end: 201301
  3. TRAZODONE [Concomitant]
  4. VITAMINS [Concomitant]

REACTIONS (16)
  - Migraine [Unknown]
  - Feeling abnormal [Unknown]
  - Nightmare [Unknown]
  - Mania [Unknown]
  - Agitation [Unknown]
  - Influenza like illness [Unknown]
  - Nausea [Unknown]
  - Retching [Unknown]
  - Diarrhoea [Unknown]
  - Malaise [Unknown]
  - Hypoaesthesia oral [Unknown]
  - Paraesthesia oral [Unknown]
  - Thinking abnormal [Unknown]
  - Confusional state [Unknown]
  - Dysarthria [Unknown]
  - Panic reaction [Unknown]
